FAERS Safety Report 12257962 (Version 3)
Quarter: 2016Q2

REPORT INFORMATION
  Report Type: Report from Study
  Country: US (occurrence: US)
  Receive Date: 20160412
  Receipt Date: 20160518
  Transmission Date: 20160815
  Serious: Yes (Other)
  Sender: FDA-Public Use
  Company Number: US-BIOGEN-2016BI00216735

PATIENT
  Sex: Female

DRUGS (4)
  1. AVONEX [Suspect]
     Active Substance: INTERFERON BETA-1A
     Route: 065
     Dates: end: 20141231
  2. AVONEX [Suspect]
     Active Substance: INTERFERON BETA-1A
     Indication: MULTIPLE SCLEROSIS
     Route: 065
     Dates: start: 19960101
  3. IBUPROFEN. [Concomitant]
     Active Substance: IBUPROFEN
     Indication: PRODUCT USED FOR UNKNOWN INDICATION
     Route: 065
  4. AVONEX [Suspect]
     Active Substance: INTERFERON BETA-1A
     Route: 030
     Dates: start: 20150601, end: 20150630

REACTIONS (24)
  - Back pain [Unknown]
  - Arthritis [Unknown]
  - Chills [Recovered/Resolved]
  - Musculoskeletal disorder [Unknown]
  - Temperature regulation disorder [Unknown]
  - Bronchitis [Unknown]
  - Fatigue [Unknown]
  - Headache [Unknown]
  - Confusional state [Unknown]
  - Blindness unilateral [Not Recovered/Not Resolved]
  - Decreased immune responsiveness [Unknown]
  - Dysgraphia [Unknown]
  - Pain in extremity [Unknown]
  - Herpes zoster [Unknown]
  - Cough [Unknown]
  - Adverse drug reaction [Unknown]
  - Neuropathy peripheral [Unknown]
  - Malaise [Unknown]
  - Product preparation error [Unknown]
  - Migraine [Recovered/Resolved]
  - Feeling cold [Recovered/Resolved]
  - Memory impairment [Unknown]
  - Muscle spasms [Unknown]
  - Muscle spasticity [Unknown]
